FAERS Safety Report 24440928 (Version 2)
Quarter: 2024Q4

REPORT INFORMATION
  Report Type: Spontaneous
  Country: IR (occurrence: IR)
  Receive Date: 20241016
  Receipt Date: 20241031
  Transmission Date: 20250114
  Serious: No
  Sender: ASTELLAS
  Company Number: IR-ASTELLAS-2024-AER-012300

PATIENT
  Age: 67 Year
  Sex: Male

DRUGS (1)
  1. VESICARE [Suspect]
     Active Substance: SOLIFENACIN SUCCINATE
     Indication: Hypertonic bladder
     Route: 048
     Dates: start: 20241003

REACTIONS (2)
  - Tremor [Recovered/Resolved]
  - Inappropriate schedule of product administration [Unknown]

NARRATIVE: CASE EVENT DATE: 20241003
